FAERS Safety Report 5993506-5 (Version None)
Quarter: 2008Q4

REPORT INFORMATION
  Report Type: 
  Country: None (occurrence: None)
  Receive Date: 20081212
  Receipt Date: 20081202
  Transmission Date: 20090506
  Serious: Yes (Death)
  Sender: FDA-Public Use
  Company Number: NL-JNJFOC-20061206060

PATIENT
  Age: 52 Year
  Sex: Female

DRUGS (5)
  1. REMICADE [Suspect]
     Dosage: ANOTHER TEN INFUSIONS RECEIVED (TOTAL OF 12)
     Route: 042
  2. REMICADE [Suspect]
     Indication: CROHN'S DISEASE
     Dosage: 2 DOSES
     Route: 042
  3. CORTICOSTEROIDS [Concomitant]
  4. 5-AMINOSALICYCLIC ACID [Concomitant]
  5. METHOTREXATE [Concomitant]

REACTIONS (1)
  - BREAST CANCER [None]
